FAERS Safety Report 25801695 (Version 2)
Quarter: 2025Q4

REPORT INFORMATION
  Report Type: Spontaneous
  Country: JP (occurrence: JP)
  Receive Date: 20250915
  Receipt Date: 20251008
  Transmission Date: 20260117
  Serious: No
  Sender: SUNOVION
  Company Number: JP-SMPA-2025SPA010776

PATIENT
  Age: 80 Year
  Sex: Female

DRUGS (1)
  1. VIBEGRON [Suspect]
     Active Substance: VIBEGRON
     Indication: Product used for unknown indication
     Dosage: 50 MG
     Route: 048
     Dates: start: 20241206, end: 20250712

REACTIONS (5)
  - Sepsis [Recovered/Resolved]
  - Abdominal pain [Recovered/Resolved]
  - Arthropod sting [Unknown]
  - Urinary retention [Recovered/Resolved]
  - Urinary tract infection [Recovered/Resolved]

NARRATIVE: CASE EVENT DATE: 20250712
